FAERS Safety Report 12155748 (Version 2)
Quarter: 2016Q1

REPORT INFORMATION
  Report Type: Spontaneous
  Country: US (occurrence: US)
  Receive Date: 20160307
  Receipt Date: 20160316
  Transmission Date: 20160526
  Serious: Yes (Other)
  Sender: FDA-Public Use
  Company Number: US-TEVA-640231USA

PATIENT
  Age: 36 Year
  Sex: Female

DRUGS (2)
  1. ZECUITY [Suspect]
     Active Substance: SUMATRIPTAN SUCCINATE
     Dosage: 6.5 MG OVER 4 HOURS
     Route: 062
     Dates: start: 201601, end: 201601
  2. ZECUITY [Suspect]
     Active Substance: SUMATRIPTAN SUCCINATE
     Indication: MIGRAINE
     Dosage: 6.5 MG OVER 4 HOURS
     Route: 062
     Dates: start: 20151126, end: 20151126

REACTIONS (8)
  - Application site paraesthesia [Not Recovered/Not Resolved]
  - Drug ineffective [Unknown]
  - Application site pain [Not Recovered/Not Resolved]
  - Application site erythema [Recovered/Resolved]
  - Drug effect incomplete [Not Recovered/Not Resolved]
  - Application site discolouration [Recovered/Resolved]
  - Application site burn [Recovered/Resolved]
  - Sunburn [Unknown]

NARRATIVE: CASE EVENT DATE: 201511
